FAERS Safety Report 23462604 (Version 1)
Quarter: 2024Q1

REPORT INFORMATION
  Report Type: Spontaneous
  Country: HU (occurrence: HU)
  Receive Date: 20240131
  Receipt Date: 20240131
  Transmission Date: 20240410
  Serious: Yes (Other)
  Sender: FDA-Public Use
  Company Number: HU-BEH-2024167873

PATIENT
  Sex: Male

DRUGS (1)
  1. HIZENTRA [Suspect]
     Active Substance: HUMAN IMMUNOGLOBULIN G
     Dosage: UNK
     Route: 058
     Dates: start: 2022

REACTIONS (12)
  - Autoimmune hepatitis [Unknown]
  - Rash macular [Recovering/Resolving]
  - Swelling face [Recovering/Resolving]
  - Muscle tightness [Unknown]
  - Bradykinesia [Unknown]
  - Tremor [Unknown]
  - Asthenia [Unknown]
  - Fatigue [Unknown]
  - Gait disturbance [Unknown]
  - Movement disorder [Unknown]
  - Muscular weakness [Unknown]
  - Back pain [Unknown]

NARRATIVE: CASE EVENT DATE: 20230101
